FAERS Safety Report 21855068 (Version 1)
Quarter: 2023Q1

REPORT INFORMATION
  Report Type: Spontaneous
  Country: CN (occurrence: CN)
  Receive Date: 20230112
  Receipt Date: 20230112
  Transmission Date: 20230418
  Serious: Yes (Other)
  Sender: FDA-Public Use
  Company Number: CN-PFIZER INC-202300014862

PATIENT
  Age: 8 Year
  Sex: Male

DRUGS (1)
  1. CYTARABINE [Suspect]
     Active Substance: CYTARABINE
     Indication: Acute lymphocytic leukaemia
     Dosage: 2000 MG, 2X/DAY
     Route: 041
     Dates: start: 20220926, end: 20220926

REACTIONS (2)
  - Myelosuppression [Recovering/Resolving]
  - Transaminases increased [Unknown]

NARRATIVE: CASE EVENT DATE: 20221006
